FAERS Safety Report 9224756 (Version 1)
Quarter: 2013Q2

REPORT INFORMATION
  Report Type: Spontaneous
  Country: US (occurrence: None)
  Receive Date: 20130409
  Receipt Date: 20130409
  Transmission Date: 20140414
  Serious: Yes (Other)
  Sender: FDA-Public Use
  Company Number: HA13-099-AE

PATIENT
  Age: 52 Year
  Sex: Male
  Weight: 136.99 kg

DRUGS (14)
  1. IBUPROFEN [Suspect]
     Indication: PRODUCT USED FOR UNKNOWN INDICATION
     Route: 048
  2. FISH OIL [Concomitant]
  3. ASPIRIN (ACETYLSALICYLIC ACID) (BAYER) [Concomitant]
  4. RANITIDINE [Concomitant]
  5. CILOSTAZOL [Concomitant]
  6. ATORVASTATIN [Concomitant]
  7. CARVEDILOL [Concomitant]
  8. FENOFIBRATE [Concomitant]
  9. LISINOPRIL [Concomitant]
  10. HYDROCHLOROTHIAZIDE [Concomitant]
  11. LANTUS (INSULIN) [Concomitant]
  12. HUMALOG (INSULIN LISPRO) [Concomitant]
  13. PODOFILOX TOPICAL SOLUTION [Concomitant]
  14. METFORMIN 1000 MG [Concomitant]

REACTIONS (1)
  - Drug hypersensitivity [None]
